FAERS Safety Report 9243262 (Version 1)
Quarter: 2013Q2

REPORT INFORMATION
  Report Type: Spontaneous
  Country: US (occurrence: US)
  Receive Date: 20130419
  Receipt Date: 20130419
  Transmission Date: 20140414
  Serious: Yes (Death, Other)
  Sender: FDA-Public Use
  Company Number: CHPA2013US006788

PATIENT
  Age: 63 Year
  Sex: Female

DRUGS (1)
  1. `COMTREX COLD+COUGH DAY [Suspect]
     Indication: NASOPHARYNGITIS
     Dosage: 2 DF, QHS FOR 2 DAYS PRN

REACTIONS (4)
  - Neoplasm malignant [Fatal]
  - Disease progression [Fatal]
  - Nasopharyngitis [Unknown]
  - Disease recurrence [Unknown]
